FAERS Safety Report 11686908 (Version 2)
Quarter: 2016Q1

REPORT INFORMATION
  Report Type: Spontaneous
  Country: BE (occurrence: BE)
  Receive Date: 20151030
  Receipt Date: 20160304
  Transmission Date: 20160525
  Serious: Yes (Other)
  Sender: FDA-Public Use
  Company Number: BE-ASTRAZENECA-2015SF04212

PATIENT
  Age: 25329 Day
  Sex: Female
  Weight: 58 kg

DRUGS (5)
  1. BYDUREON [Suspect]
     Active Substance: EXENATIDE
     Indication: TYPE 2 DIABETES MELLITUS
     Dosage: ONCE A WEEK
     Route: 065
     Dates: start: 20140822
  2. CO-APROVEL [Concomitant]
     Active Substance: HYDROCHLOROTHIAZIDE\IRBESARTAN
     Indication: HYPERTENSION
     Dosage: 300MG/12.5MG, ONE DF, DAILY
     Route: 048
     Dates: start: 20140307
  3. NOVONORM [Concomitant]
     Active Substance: REPAGLINIDE
     Indication: DIABETES MELLITUS
     Route: 048
     Dates: start: 20060113
  4. GLUCOPHAGE [Concomitant]
     Active Substance: METFORMIN HYDROCHLORIDE
     Indication: DIABETES MELLITUS
     Route: 048
     Dates: start: 1998
  5. NOBITEN [Concomitant]
     Indication: HYPERTENSION
     Route: 048
     Dates: start: 20150329

REACTIONS (4)
  - Injection site nodule [Recovered/Resolved]
  - Glycosylated haemoglobin increased [Recovered/Resolved]
  - Blindness transient [Recovered/Resolved]
  - Injection site pain [Recovered/Resolved]

NARRATIVE: CASE EVENT DATE: 20140830
